FAERS Safety Report 6999108-6 (Version None)
Quarter: 2010Q3

REPORT INFORMATION
  Report Type: 
  Country: None (occurrence: None)
  Receive Date: 20100920
  Receipt Date: 20100608
  Transmission Date: 20110219
  Serious: No
  Sender: FDA-Public Use
  Company Number: US-ASTRAZENECA-2010SE33821

PATIENT
  Sex: Male

DRUGS (3)
  1. SEROQUEL [Suspect]
     Indication: BIPOLAR DISORDER
     Route: 048
  2. VALPROIC ACID [Suspect]
     Route: 065
  3. FLUOXETINE [Suspect]
     Route: 065

REACTIONS (3)
  - ADVERSE DRUG REACTION [None]
  - ERECTILE DYSFUNCTION [None]
  - WEIGHT INCREASED [None]
